FAERS Safety Report 4484489-8 (Version None)
Quarter: 2004Q3

REPORT INFORMATION
  Report Type: 
  Country: None (occurrence: None)
  Receive Date: 20040921
  Receipt Date: 20040107
  Transmission Date: 20050211
  Serious: Yes (Hospitalization)
  Sender: FDA-Public Use
  Company Number: 163-20785-04010159

PATIENT
  Age: 48 Year
  Sex: Female

DRUGS (7)
  1. THALOMID [Suspect]
     Indication: OVARIAN CANCER
     Dosage: 200 MG, DAILY, ORAL
     Route: 048
     Dates: start: 20030910, end: 20031215
  2. TYLENOL [Suspect]
  3. COUMADIN [Concomitant]
  4. ACETYLSALICYLIC ACID SRT [Concomitant]
  5. VITAMIN B12 [Concomitant]
  6. CALTRATE (CALCIUM CARBONATE) [Concomitant]
  7. CORAL CALCIUM (CALCIUM) [Concomitant]

REACTIONS (5)
  - ABDOMINAL PAIN [None]
  - ABDOMINAL PAIN UPPER [None]
  - ASCITES [None]
  - CARBOHYDRATE ANTIGEN 125 INCREASED [None]
  - CONSTIPATION [None]
